FAERS Safety Report 21014793 (Version 1)
Quarter: 2022Q3

REPORT INFORMATION
  Report Type: Spontaneous
  Country: JP (occurrence: JP)
  Receive Date: 20220628
  Receipt Date: 20220628
  Transmission Date: 20221027
  Serious: Yes (Other)
  Sender: FDA-Public Use
  Company Number: JP-NOVARTISPH-NVSJ2022JP092820

PATIENT
  Age: 73 Year
  Sex: Female

DRUGS (4)
  1. VALACYCLOVIR HYDROCHLORIDE [Suspect]
     Active Substance: VALACYCLOVIR HYDROCHLORIDE
     Indication: Herpes virus infection
     Dosage: UNK, QD NIGHT
     Route: 048
     Dates: start: 20220512
  2. VALACYCLOVIR HYDROCHLORIDE [Suspect]
     Active Substance: VALACYCLOVIR HYDROCHLORIDE
     Dosage: UNK, BID MORNING AND NIGHT
     Route: 048
     Dates: start: 20220513, end: 20220516
  3. LOXOPROFEN SODIUM [Concomitant]
     Active Substance: LOXOPROFEN SODIUM
     Indication: Back pain
     Dosage: UNK
     Route: 065
  4. LOXOPROFEN SODIUM [Concomitant]
     Active Substance: LOXOPROFEN SODIUM
     Indication: Pain

REACTIONS (10)
  - Urinary retention [Unknown]
  - Pain [Unknown]
  - Dysstasia [Unknown]
  - Motor dysfunction [Unknown]
  - Arthralgia [Not Recovered/Not Resolved]
  - Neck pain [Not Recovered/Not Resolved]
  - Insomnia [Unknown]
  - Gait inability [Unknown]
  - Ataxia [Unknown]
  - Gait disturbance [Unknown]

NARRATIVE: CASE EVENT DATE: 20220501
